FAERS Safety Report 6677877-2 (Version None)
Quarter: 2010Q2

REPORT INFORMATION
  Report Type: 
  Country: None (occurrence: None)
  Receive Date: 20100412
  Receipt Date: 20100406
  Transmission Date: 20101027
  Serious: Yes (Hospitalization, Other)
  Sender: FDA-Public Use
  Company Number: US-ALEXION-A201000266

PATIENT
  Sex: Female
  Weight: 65.76 kg

DRUGS (1)
  1. SOLIRIS [Suspect]
     Indication: PAROXYSMAL NOCTURNAL HAEMOGLOBINURIA
     Dosage: 600 MG, UNK
     Route: 042
     Dates: start: 20100304

REACTIONS (8)
  - ARTHRITIS [None]
  - BACTERIAL SEPSIS [None]
  - CHONDROCALCINOSIS PYROPHOSPHATE [None]
  - DISSEMINATED INTRAVASCULAR COAGULATION [None]
  - FIBRIN D DIMER INCREASED [None]
  - HAEMOGLOBIN DECREASED [None]
  - HYPERGLYCAEMIA [None]
  - PROTHROMBIN TIME PROLONGED [None]
